FAERS Safety Report 13123247 (Version 1)
Quarter: 2017Q1

REPORT INFORMATION
  Report Type: Report from Study
  Country: US (occurrence: US)
  Receive Date: 20170117
  Receipt Date: 20170117
  Transmission Date: 20170428
  Serious: No
  Sender: FDA-Public Use
  Company Number: US-AMGEN-USASL2016163823

PATIENT
  Age: 57 Year
  Sex: Female
  Weight: 72.11 kg

DRUGS (7)
  1. FISH OIL [Concomitant]
     Active Substance: FISH OIL
     Dosage: 1000 MG, QD
     Route: 048
  2. ASPIRIN. [Concomitant]
     Active Substance: ASPIRIN
     Dosage: 81 MG, QD
     Route: 048
  3. LISINOPRIL. [Concomitant]
     Active Substance: LISINOPRIL
     Dosage: 20 MG, BID
  4. CORLANOR [Suspect]
     Active Substance: IVABRADINE HYDROCHLORIDE
     Indication: TACHYCARDIA PAROXYSMAL
     Dosage: 5 MG, BID
     Route: 048
  5. PRAVASTATIN. [Concomitant]
     Active Substance: PRAVASTATIN
     Dosage: 40 MG, QD
     Route: 048
  6. VICTOZA [Concomitant]
     Active Substance: LIRAGLUTIDE
     Dosage: 2 PAK 6 MG/ML, UNK
  7. LISINOPRIL. [Concomitant]
     Active Substance: LISINOPRIL
     Dosage: UNK

REACTIONS (1)
  - Off label use [Unknown]
